FAERS Safety Report 24724936 (Version 1)
Quarter: 2024Q4

REPORT INFORMATION
  Report Type: Spontaneous
  Country: GB (occurrence: GB)
  Receive Date: 20241212
  Receipt Date: 20241212
  Transmission Date: 20250114
  Serious: Yes (Other)
  Sender: BAXTER
  Company Number: GB-MHRA-WEBRADR-202412060930540400-SKYTL

PATIENT

DRUGS (1)
  1. TRANSDERM SCOP [Suspect]
     Active Substance: SCOPOLAMINE
     Dosage: UNK
     Route: 065

REACTIONS (1)
  - Device interaction [Recovered/Resolved]
